FAERS Safety Report 7998026-4 (Version None)
Quarter: 2011Q4

REPORT INFORMATION
  Report Type: 
  Country: None (occurrence: None)
  Receive Date: 20111221
  Receipt Date: 20101129
  Transmission Date: 20120403
  Serious: No
  Sender: FDA-Public Use
  Company Number: US-GLAXOSMITHKLINE-A0896728A

PATIENT
  Age: 54 Year
  Sex: Male

DRUGS (3)
  1. LOVAZA [Suspect]
     Indication: BLOOD TRIGLYCERIDES INCREASED
     Dosage: 1000MG TWICE PER DAY
     Route: 048
     Dates: start: 20020101
  2. SIMVASTATIN [Concomitant]
  3. DIAZEPAM [Concomitant]

REACTIONS (1)
  - DYSPEPSIA [None]
